FAERS Safety Report 10286140 (Version 1)
Quarter: 2014Q3

REPORT INFORMATION
  Report Type: Spontaneous
  Country: CA (occurrence: CA)
  Receive Date: 20140709
  Receipt Date: 20140709
  Transmission Date: 20150326
  Serious: Yes (Other)
  Sender: FDA-Public Use
  Company Number: CA-SA-2014SA086403

PATIENT
  Age: 45 Year
  Sex: Female
  Weight: 70.6 kg

DRUGS (3)
  1. FABRAZYME [Suspect]
     Active Substance: AGALSIDASE BETA
     Indication: FABRY^S DISEASE
     Dosage: LOT NUMBERS: 35 MG E3026Y04 AND EXP DATE AUG-2016 AND 5 MG E3016Y09 AND EXP DATE MAY-2016
     Route: 042
     Dates: start: 201206
  2. TOPIRAMATE. [Concomitant]
     Active Substance: TOPIRAMATE
     Route: 048
  3. FABRAZYME [Suspect]
     Active Substance: AGALSIDASE BETA
     Indication: FABRY^S DISEASE
     Dosage: LOT NUMBERS: 35 MG E3026Y04 AND EXP DATE AUG-2016 AND 5 MG E3016Y09 AND EXP DATE MAY-2016
     Route: 042
     Dates: start: 201206

REACTIONS (1)
  - Urinary tract infection [Not Recovered/Not Resolved]

NARRATIVE: CASE EVENT DATE: 20140616
